FAERS Safety Report 22907803 (Version 4)
Quarter: 2023Q4

REPORT INFORMATION
  Report Type: Spontaneous
  Country: US (occurrence: US)
  Receive Date: 20230905
  Receipt Date: 20231019
  Transmission Date: 20240110
  Serious: Yes (Hospitalization, Other)
  Sender: FDA-Public Use
  Company Number: US-PFIZER INC-PV202300149453

PATIENT
  Age: 84 Year
  Sex: Female
  Weight: 60.771 kg

DRUGS (4)
  1. TIKOSYN [Suspect]
     Active Substance: DOFETILIDE
     Indication: Atrial fibrillation
     Dosage: 125 UG, 2X/DAY
     Dates: start: 202306
  2. TIKOSYN [Suspect]
     Active Substance: DOFETILIDE
     Indication: Atrial flutter
  3. ELIQUIS [Concomitant]
     Active Substance: APIXABAN
     Dosage: UNK
     Dates: start: 202306
  4. CARDIZEM [Concomitant]
     Active Substance: DILTIAZEM HYDROCHLORIDE
     Dosage: UNK
     Dates: start: 202307

REACTIONS (5)
  - Atrial fibrillation [Unknown]
  - Atrial flutter [Unknown]
  - Condition aggravated [Unknown]
  - Thrombosis [Unknown]
  - Hypoacusis [Unknown]

NARRATIVE: CASE EVENT DATE: 20230829
